FAERS Safety Report 16010994 (Version 1)
Quarter: 2019Q1

REPORT INFORMATION
  Report Type: Report from Study
  Country: ES (occurrence: ES)
  Receive Date: 20190227
  Receipt Date: 20190227
  Transmission Date: 20190418
  Serious: Yes (Hospitalization)
  Sender: FDA-Public Use
  Company Number: ES-ACCORD-109251

PATIENT
  Age: 36 Year
  Sex: Female

DRUGS (5)
  1. ALLOPURINOL. [Suspect]
     Active Substance: ALLOPURINOL
     Indication: HYPERURICAEMIA
     Dosage: 0-1-0,FREQUENCY AND DOSAGE PER DOSE: 100 MG, FREQUENCY UNIT: 1 DAY,NO  FREQUENCY UNIT: 1
     Route: 048
     Dates: start: 20141218, end: 20150327
  2. EDEMOX [Concomitant]
     Active Substance: ACETAZOLAMIDE
     Indication: HYPERTENSION
     Dosage: STRENGTH 250 MG,0-1-0,FREQUENCY AND DOSAGE PER DOSE 250 MG,FREQUENCY UNIT:1 DAY,NO FREQUENCY UNIT:1
     Route: 048
     Dates: start: 20141218, end: 20150327
  3. OMEPRAZOLE. [Concomitant]
     Active Substance: OMEPRAZOLE
     Indication: PROPHYLAXIS AGAINST GASTROINTESTINAL ULCER
     Dosage: 1 CP,FREQUENCY AND DOSAGE PER DOSE: 20 MG,FREQUENCY UNIT: 1 DAY, NO FREQUENCY UNIT: 1
     Route: 048
     Dates: start: 201407
  4. PREDNISONE. [Concomitant]
     Active Substance: PREDNISONE
     Indication: GLOMERULONEPHRITIS
     Dosage: 50 MG IN DESCENDING DOSE,FREQUENCY UNIT: 0 DAY
     Route: 048
     Dates: start: 201407
  5. VALSARTAN. [Concomitant]
     Active Substance: VALSARTAN
     Indication: HYPERTENSION
     Dosage: 1-0-0,FREQUENCY AND DOSAGE PER DOSE: 80 MG,FREQUENCY UNIT: 1 DAY,NO FREQUENCY UNIT: 1
     Route: 048
     Dates: start: 20141218, end: 20150327

REACTIONS (4)
  - Liver disorder [Recovered/Resolved]
  - Drug reaction with eosinophilia and systemic symptoms [Recovered/Resolved]
  - Tubulointerstitial nephritis [Recovered/Resolved]
  - Pancreatitis [Recovered/Resolved]

NARRATIVE: CASE EVENT DATE: 20150307
